FAERS Safety Report 23986097 (Version 2)
Quarter: 2024Q3

REPORT INFORMATION
  Report Type: Spontaneous
  Country: US (occurrence: US)
  Receive Date: 20240618
  Receipt Date: 20240701
  Transmission Date: 20241016
  Serious: Yes (Other)
  Sender: TEVA
  Company Number: US-TEVA-VS-3202460

PATIENT
  Age: 14 Year
  Sex: Female

DRUGS (4)
  1. METHYLPREDNISOLONE [Suspect]
     Active Substance: METHYLPREDNISOLONE
     Indication: Pemphigus
     Route: 042
  2. MYCOPHENOLATE MOFETIL [Suspect]
     Active Substance: MYCOPHENOLATE MOFETIL
     Indication: Pemphigus
     Route: 065
  3. IMMUNE GLOBULIN [Concomitant]
     Indication: Pemphigus
     Route: 042
  4. PREDNISONE [Suspect]
     Active Substance: PREDNISONE
     Indication: Pemphigus
     Route: 048

REACTIONS (5)
  - Infection [Unknown]
  - Oedema [Unknown]
  - Hypertrichosis [Unknown]
  - Cushingoid [Unknown]
  - Therapy non-responder [Unknown]
